FAERS Safety Report 5833579-3 (Version None)
Quarter: 2008Q3

REPORT INFORMATION
  Report Type: 
  Country: None (occurrence: None)
  Receive Date: 20080805
  Receipt Date: 20080801
  Transmission Date: 20090109
  Serious: Yes (Hospitalization)
  Sender: FDA-Public Use
  Company Number: FR-RB-002866-08

PATIENT
  Age: 27 Year
  Sex: Male

DRUGS (3)
  1. SUBUTEX [Suspect]
     Indication: WITHDRAWAL SYNDROME
  2. SUBUTEX [Suspect]
  3. COCAINE [Suspect]
     Indication: DRUG USE FOR UNKNOWN INDICATION
     Dosage: USES ONCE MONTHLY. DOSING INFORMATION UNKNOWN

REACTIONS (7)
  - ADVERSE DRUG REACTION [None]
  - HYPERHIDROSIS [None]
  - INCORRECT ROUTE OF DRUG ADMINISTRATION [None]
  - MALAISE [None]
  - SUBSTANCE ABUSE [None]
  - SUICIDAL IDEATION [None]
  - WEIGHT INCREASED [None]
